FAERS Safety Report 23916880 (Version 4)
Quarter: 2024Q2

REPORT INFORMATION
  Report Type: Spontaneous
  Country: JP (occurrence: JP)
  Receive Date: 20240529
  Receipt Date: 20240624
  Transmission Date: 20240716
  Serious: Yes (Other)
  Sender: FDA-Public Use
  Company Number: JP-ALXN-202405JPN001454JP

PATIENT
  Age: 6 Decade
  Sex: Male

DRUGS (6)
  1. ULTOMIRIS [Suspect]
     Active Substance: RAVULIZUMAB-CWVZ
     Indication: Paroxysmal nocturnal haemoglobinuria
     Dosage: 2700 MILLIGRAM, SINGLE
     Route: 042
     Dates: start: 20220118, end: 20220118
  2. ULTOMIRIS [Suspect]
     Active Substance: RAVULIZUMAB-CWVZ
     Dosage: 3300 MILLIGRAM, Q56
     Route: 042
     Dates: end: 20231219
  3. ULTOMIRIS [Suspect]
     Active Substance: RAVULIZUMAB-CWVZ
     Dosage: 2700 MILLIGRAM, SINGLE
     Route: 042
     Dates: start: 20240507
  4. ULTOMIRIS [Suspect]
     Active Substance: RAVULIZUMAB-CWVZ
     Dosage: 3300 MILLIGRAM, Q56
     Route: 042
  5. DANICOPAN [Concomitant]
     Active Substance: DANICOPAN
     Indication: Paroxysmal nocturnal haemoglobinuria
     Dosage: 150 MILLIGRAM, TID (AFTER MEALS)
     Route: 048
     Dates: start: 20240507
  6. EMPAVELI [Concomitant]
     Active Substance: PEGCETACOPLAN
     Indication: Paroxysmal nocturnal haemoglobinuria
     Dosage: 1080 MILLIGRAM. TWICE A WEEK
     Route: 065
     Dates: start: 20240111, end: 202404

REACTIONS (3)
  - Extravascular haemolysis [Recovering/Resolving]
  - Bone marrow failure [Unknown]
  - Condition aggravated [Unknown]

NARRATIVE: CASE EVENT DATE: 20231201
